FAERS Safety Report 10314945 (Version 1)
Quarter: 2014Q3

REPORT INFORMATION
  Report Type: Spontaneous
  Country: CH (occurrence: CH)
  Receive Date: 20140718
  Receipt Date: 20140718
  Transmission Date: 20150326
  Serious: Yes (Hospitalization, Other)
  Sender: FDA-Public Use
  Company Number: CH-009507513-1407CHE007720

PATIENT
  Age: 47 Year
  Sex: Male
  Weight: 120 kg

DRUGS (13)
  1. SIMEPREVIR [Suspect]
     Active Substance: SIMEPREVIR
     Indication: HEPATITIS C
     Dosage: 150 MG, ONCE DAILY
     Route: 048
     Dates: start: 201402
  2. TRUVADA [Suspect]
     Active Substance: EMTRICITABINE\TENOFOVIR DISOPROXIL FUMARATE
     Indication: HIV INFECTION
     Dosage: 200/245 MG, QD
     Route: 048
  3. BECOZYME [Concomitant]
     Dosage: ONCE DAILY
  4. ISENTRESS [Suspect]
     Active Substance: RALTEGRAVIR POTASSIUM
     Indication: HIV INFECTION
     Dosage: 400 MG, ONCE DAILY
     Route: 048
  5. COPEGUS [Suspect]
     Active Substance: RIBAVIRIN
     Indication: HEPATITIS C
     Dosage: 5/DAY
     Route: 048
     Dates: start: 201402, end: 20140609
  6. ALDACTONE [Suspect]
     Active Substance: SPIRONOLACTONE
     Indication: ASCITES
     Dosage: 50 MG, QD
     Route: 048
     Dates: end: 20140612
  7. RIBOFLAVIN [Concomitant]
     Active Substance: RIBOFLAVIN
     Dosage: ONCE DAILY
  8. NORFLOXACIN [Suspect]
     Active Substance: NORFLOXACIN
     Indication: ASCITES
     Dosage: 400 MG, ONCE DAILY
     Route: 048
     Dates: start: 201404
  9. DEXPANTHENOL. [Concomitant]
     Active Substance: DEXPANTHENOL
     Dosage: ONCE DAILY
  10. DACLATASVIR [Suspect]
     Active Substance: DACLATASVIR
     Indication: HEPATITIS C
     Dosage: 60 MG, ONCE DAILY
     Route: 048
     Dates: start: 201402
  11. PYRIDOXINE [Concomitant]
     Active Substance: PYRIDOXINE
     Dosage: ONCE DAILY
  12. BENERVA [Concomitant]
     Active Substance: THIAMINE
     Dosage: 300 MG, ONCE DAILY
     Route: 048
  13. NORFLOXACIN [Suspect]
     Active Substance: NORFLOXACIN
     Indication: PROPHYLAXIS

REACTIONS (2)
  - Renal failure [Recovering/Resolving]
  - Haemolytic anaemia [Not Recovered/Not Resolved]

NARRATIVE: CASE EVENT DATE: 20140528
